FAERS Safety Report 9768956 (Version 1)
Quarter: 2013Q4

REPORT INFORMATION
  Report Type: Spontaneous
  Country: US (occurrence: US)
  Receive Date: 20131218
  Receipt Date: 20131218
  Transmission Date: 20140711
  Serious: No
  Sender: FDA-Public Use
  Company Number: US-BAYER-2013-142275

PATIENT
  Age: 38 Year
  Sex: Female

DRUGS (1)
  1. MIRENA [Suspect]
     Dosage: 20 MG/24HR, CONT
     Route: 015
     Dates: start: 20131025

REACTIONS (2)
  - Abdominal pain lower [Not Recovered/Not Resolved]
  - Urticaria [Recovered/Resolved]
